FAERS Safety Report 25897124 (Version 1)
Quarter: 2025Q4

REPORT INFORMATION
  Report Type: Report from Study
  Country: CA (occurrence: CA)
  Receive Date: 20251008
  Receipt Date: 20251008
  Transmission Date: 20260117
  Serious: Yes (Other)
  Sender: ROCHE
  Company Number: CA-002147023-NVSC2025CA147870

PATIENT
  Age: 31 Year
  Sex: Female

DRUGS (6)
  1. XOLAIR [Suspect]
     Active Substance: OMALIZUMAB
     Indication: Chronic spontaneous urticaria
     Dosage: 450 MG EVERY 3 WEEKS
     Route: 058
     Dates: start: 20240916
  2. XOLAIR [Suspect]
     Active Substance: OMALIZUMAB
     Route: 058
     Dates: end: 20250717
  3. KETOTIFEN [Concomitant]
     Active Substance: KETOTIFEN
  4. MONTELUKAST [Concomitant]
     Active Substance: MONTELUKAST
  5. BILASTINE [Concomitant]
     Active Substance: BILASTINE
  6. RANITIDINE [Concomitant]
     Active Substance: RANITIDINE

REACTIONS (5)
  - Anaphylactic reaction [Unknown]
  - Dizziness [Unknown]
  - Dyspnoea [Unknown]
  - Fatigue [Unknown]
  - Skin burning sensation [Unknown]

NARRATIVE: CASE EVENT DATE: 20250101
